FAERS Safety Report 21959512 (Version 2)
Quarter: 2023Q1

REPORT INFORMATION
  Report Type: Spontaneous
  Country: GB (occurrence: GB)
  Receive Date: 20230206
  Receipt Date: 20230222
  Transmission Date: 20230417
  Serious: Yes (Hospitalization, Other)
  Sender: FDA-Public Use
  Company Number: None

PATIENT
  Age: 89 Year
  Sex: Male

DRUGS (21)
  1. CIPROFLOXACIN [Suspect]
     Active Substance: CIPROFLOXACIN
     Indication: Scrotal cellulitis
     Dosage: 500 MILLIGRAM, BID (500MG BD 17TH-23RD JUNE)
     Route: 065
     Dates: start: 20220617, end: 20220623
  2. DAPAGLIFLOZIN [Concomitant]
     Active Substance: DAPAGLIFLOZIN
     Dosage: 1 DOSAGE FORM AM (5MG TABLETS 1OM)
     Route: 065
  3. DAPAGLIFLOZIN [Concomitant]
     Active Substance: DAPAGLIFLOZIN
     Dosage: 5 MILLIGRAM, QD
     Route: 065
  4. DOXAZOSIN [Concomitant]
     Active Substance: DOXAZOSIN MESYLATE
     Dosage: 1 DOSAGE FORM, AM (2MG TABLETS 1OM)
     Route: 065
  5. DOXAZOSIN [Concomitant]
     Active Substance: DOXAZOSIN MESYLATE
     Dosage: 2 MILLIGRAM, QD
     Route: 065
  6. FELODIPINE [Concomitant]
     Active Substance: FELODIPINE
     Dosage: 1 DOSAGE FORM, AM (10MG MODIFIED-RELEASE TABLETS 1OM)
     Route: 065
  7. FELODIPINE [Concomitant]
     Active Substance: FELODIPINE
     Dosage: 10 MILLIGRAM, QD
     Route: 065
  8. GABAPENTIN [Concomitant]
     Active Substance: GABAPENTIN
     Dosage: UNK (300MG CAPSULES, 1 IN MORNING AND MIDDAY AS NEEDED AND 2 AT NIGHT - TAKES 1OM + 2ON)
     Route: 065
  9. GABAPENTIN [Concomitant]
     Active Substance: GABAPENTIN
     Dosage: 300 MILLIGRAM, TID
     Route: 065
  10. LINAGLIPTIN [Concomitant]
     Active Substance: LINAGLIPTIN
     Dosage: 1 DOSAGE FORM, AM (5MG TABLETS 1OM)
     Route: 065
  11. LINAGLIPTIN [Concomitant]
     Active Substance: LINAGLIPTIN
     Dosage: 5 MILLIGRAM, QD
     Route: 065
  12. OMEPRAZOLE [Concomitant]
     Active Substance: OMEPRAZOLE
     Dosage: 1 DOSAGE FORM, AM (20MG GASTRO-RESISTANT CAPSULES 1OM)
     Route: 065
  13. OMEPRAZOLE [Concomitant]
     Active Substance: OMEPRAZOLE
     Dosage: 20 MILLIGRAM, QD
     Route: 065
  14. OXYCODONE [Concomitant]
     Active Substance: OXYCODONE
     Dosage: UNK (2.5MG QDS PRN 17TH-30TH JUNE)
     Route: 065
  15. OXYCODONE [Concomitant]
     Active Substance: OXYCODONE
     Dosage: UNK
     Route: 065
  16. SIMVASTATIN [Concomitant]
     Active Substance: SIMVASTATIN
     Dosage: 1 DOSAGE FORM, HS (40MG TABLETS 1ON)
     Route: 065
  17. SIMVASTATIN [Concomitant]
     Active Substance: SIMVASTATIN
     Dosage: 40 MILLIGRAM, QD
     Route: 065
  18. TIGECYCLINE [Concomitant]
     Active Substance: TIGECYCLINE
     Dosage: 100 MILLIGRAM (100MG STAT 22ND JUNE)
     Route: 065
  19. TIGECYCLINE [Concomitant]
     Active Substance: TIGECYCLINE
     Dosage: UNK
     Route: 065
  20. DERMOL [Concomitant]
     Active Substance: BENZALKONIUM CHLORIDE\CHLORHEXIDINE HYDROCHLORIDE\ISOPROPYL MYRISTATE\PARAFFIN
     Dosage: APPLY TO THE SKIN OR USE AS A SOAP SUBSTITUTE
     Route: 065
  21. COCODAMOL [Concomitant]
     Active Substance: ACETAMINOPHEN\CODEINE PHOSPHATE
     Dosage: UNK
     Route: 065

REACTIONS (4)
  - Scrotal oedema [Unknown]
  - Penile oedema [Unknown]
  - Rash erythematous [Unknown]
  - Oedema peripheral [Unknown]
